FAERS Safety Report 21527799 (Version 2)
Quarter: 2022Q4

REPORT INFORMATION
  Report Type: Spontaneous
  Country: US (occurrence: US)
  Receive Date: 20221031
  Receipt Date: 20221031
  Transmission Date: 20230113
  Serious: No
  Sender: FDA-Public Use
  Company Number: US-RECKITT BENCKISER HEALTHCARE INT LIMITED-RB-083602-2022

PATIENT
  Sex: Female

DRUGS (2)
  1. MUCINEX [Suspect]
     Active Substance: GUAIFENESIN
     Indication: Upper-airway cough syndrome
     Dosage: UNK
     Route: 048
     Dates: start: 20220209
  2. MUCINEX [Suspect]
     Active Substance: GUAIFENESIN
     Indication: Cough

REACTIONS (2)
  - Heart rate irregular [Recovered/Resolved]
  - Drug ineffective [Not Recovered/Not Resolved]
